FAERS Safety Report 4909857-9 (Version None)
Quarter: 2006Q1

REPORT INFORMATION
  Report Type: 
  Country: None (occurrence: None)
  Receive Date: 20060208
  Receipt Date: 20060126
  Transmission Date: 20060701
  Serious: Yes (Other)
  Sender: FDA-Public Use
  Company Number: 2006013535

PATIENT
  Sex: Male
  Weight: 84.369 kg

DRUGS (13)
  1. VIAGRA [Suspect]
     Indication: ERECTILE DYSFUNCTION
     Dosage: 50 MG (50 MG, 1 AS NECESSARY),
  2. EFFEXOR [Suspect]
     Indication: DEPRESSION
     Dosage: 50 MG (25 MG, 2 IN 1 D),
  3. NUTRITIONAL SUPPLEMENT (GENERAL NUTRIENTS) [Concomitant]
  4. ALTACE [Concomitant]
  5. FOLIC ACID [Concomitant]
  6. CELEBREX (CELECXIB) [Concomitant]
  7. UROXATRAL (ALFUSOSIN HYDROCHLORIDE) [Concomitant]
  8. AMBIEN [Concomitant]
  9. SYNTHROID [Concomitant]
  10. TENIDAP (TENIDAP SODIUM) [Concomitant]
  11. ASPIRIN [Concomitant]
  12. PINDOLOL [Concomitant]
  13. PRILOSEC [Concomitant]

REACTIONS (8)
  - CONDITION AGGRAVATED [None]
  - CORONARY ARTERY OCCLUSION [None]
  - DEPRESSION [None]
  - DRUG EFFECT DECREASED [None]
  - DRUG INEFFECTIVE [None]
  - ERECTILE DYSFUNCTION [None]
  - HANGOVER [None]
  - HYPERTENSION [None]
